FAERS Safety Report 4830370-1 (Version None)
Quarter: 2005Q4

REPORT INFORMATION
  Report Type: 
  Country: None (occurrence: None)
  Receive Date: 20051117
  Receipt Date: 20051111
  Transmission Date: 20060501
  Serious: Yes (Other)
  Sender: FDA-Public Use
  Company Number: IE-AVENTIS-200519974GDDC

PATIENT
  Sex: Male

DRUGS (2)
  1. LANTUS [Suspect]
     Route: 058
     Dates: end: 20051111
  2. NOVORAPID [Concomitant]
     Route: 058

REACTIONS (5)
  - ASTHENIA [None]
  - FEAR [None]
  - MALAISE [None]
  - PALPITATIONS [None]
  - PARAESTHESIA [None]
